FAERS Safety Report 7531293-X (Version None)
Quarter: 2011Q2

REPORT INFORMATION
  Report Type: 
  Country: None (occurrence: None)
  Receive Date: 20110608
  Receipt Date: 20110526
  Transmission Date: 20111010
  Serious: Yes (Other)
  Sender: FDA-Public Use
  Company Number: US-BAYER-2011-041198

PATIENT
  Age: 54 Year
  Sex: Male

DRUGS (3)
  1. NEXAVAR [Suspect]
     Dosage: 200 MG, BID
     Route: 048
     Dates: start: 20110519
  2. NEXAVAR [Suspect]
     Indication: HEPATIC NEOPLASM MALIGNANT
     Dosage: 400 MG, BID
     Route: 048
     Dates: start: 20110509, end: 20110510
  3. DIURETICS [Concomitant]

REACTIONS (7)
  - FLUID RETENTION [None]
  - PAIN IN EXTREMITY [None]
  - SKIN FISSURES [None]
  - WEIGHT DECREASED [None]
  - DECREASED APPETITE [None]
  - TONGUE BLISTERING [None]
  - FATIGUE [None]
